FAERS Safety Report 24958521 (Version 1)
Quarter: 2025Q1

REPORT INFORMATION
  Report Type: Spontaneous
  Country: US (occurrence: US)
  Receive Date: 20250212
  Receipt Date: 20250212
  Transmission Date: 20250408
  Serious: Yes (Death)
  Sender: SPECGX
  Company Number: US-SPECGX-T202500156

PATIENT
  Age: 56 Year
  Sex: Male

DRUGS (1)
  1. FENTANYL CITRATE [Suspect]
     Active Substance: FENTANYL CITRATE
     Indication: Product used for unknown indication
     Route: 051

REACTIONS (2)
  - Medication error [Fatal]
  - Incorrect route of product administration [Fatal]

NARRATIVE: CASE EVENT DATE: 20230101
